FAERS Safety Report 4918344-3 (Version None)
Quarter: 2006Q1

REPORT INFORMATION
  Report Type: 
  Country: None (occurrence: None)
  Receive Date: 20060217
  Receipt Date: 20060217
  Transmission Date: 20060701
  Serious: Yes (Hospitalization)
  Sender: FDA-Public Use
  Company Number: None

PATIENT
  Age: 78 Year
  Sex: Male
  Weight: 54.9 kg

DRUGS (8)
  1. LEVOFLOXACIN [Suspect]
     Indication: BACTERAEMIA
     Dosage: 500 MG DAILY PO
     Route: 048
     Dates: start: 20060206
  2. LEVOFLOXACIN [Suspect]
     Indication: BACTERAEMIA
     Dosage: 500 MG DAILY PO
     Route: 048
     Dates: start: 20060207
  3. LEVOFLOXACIN [Suspect]
     Indication: BACTERAEMIA
     Dosage: 500 MG DAILY PO
     Route: 048
     Dates: start: 20060208
  4. LEVOFLOXACIN [Suspect]
     Indication: BACTERAEMIA
     Dosage: 500 MG DAILY PO
     Route: 048
     Dates: start: 20060209
  5. CALCIUM GLUCONATE [Concomitant]
  6. ENOXAPARIN SODIUM [Concomitant]
  7. FAMOTIDINE [Concomitant]
  8. LIDOCAINE [Concomitant]

REACTIONS (1)
  - ELECTROCARDIOGRAM QT CORRECTED INTERVAL PROLONGED [None]
